FAERS Safety Report 14238727 (Version 3)
Quarter: 2018Q1

REPORT INFORMATION
  Report Type: Spontaneous
  Country: AT (occurrence: AT)
  Receive Date: 20171130
  Receipt Date: 20180208
  Transmission Date: 20180508
  Serious: Yes (Congenital Anomaly)
  Sender: FDA-Public Use
  Company Number: AT-LPDUSPRD-20171608

PATIENT
  Sex: Male
  Weight: 2.97 kg

DRUGS (9)
  1. FERINJECT [Suspect]
     Active Substance: FERRIC CARBOXYMALTOSE
     Dosage: 500 MG(1 IN 2-2) 1 DOSAGE FORM
     Route: 064
     Dates: start: 20170911, end: 20170911
  2. FENISTIL [Concomitant]
     Active Substance: DIMETHINDENE
     Dosage: 1 AMPULE
     Route: 064
     Dates: start: 20170911
  3. GYNIPRAL [Concomitant]
     Dosage: 1/2 AMP
     Route: 064
     Dates: start: 20170911
  4. PANTOLOC [Concomitant]
     Active Substance: PANTOPRAZOLE SODIUM
     Dosage: 40 MG
     Route: 064
     Dates: start: 20170911
  5. PASPERTIN [METOCLOPRAMIDE HYDROCHLORIDE] [Concomitant]
     Active Substance: METOCLOPRAMIDE HYDROCHLORIDE
     Dosage: 1 AMPULE
     Route: 064
     Dates: start: 20170911
  6. ELOMEL ISOTON [Concomitant]
     Dosage: 500 ML
     Route: 064
  7. ERYCYTOL [Concomitant]
     Dosage: 1 MG
     Route: 064
     Dates: start: 201711
  8. NASOGASTRIC OXYGEN ADMINISTRATION [Concomitant]
     Dosage: UNKNOWN
     Route: 064
     Dates: start: 20170911
  9. FERRETAB (FERROUS FUMARATE) [Suspect]
     Active Substance: FERROUS FUMARATE
     Route: 064
     Dates: start: 2017, end: 201709

REACTIONS (7)
  - Foetal exposure during pregnancy [Not Recovered/Not Resolved]
  - Incorrect drug administration duration [Unknown]
  - Polyhydramnios [Not Recovered/Not Resolved]
  - Heart sounds abnormal [Not Recovered/Not Resolved]
  - Oesophageal atresia [Not Recovered/Not Resolved]
  - Maternal drugs affecting foetus [None]
  - Congenital anomaly [Not Recovered/Not Resolved]

NARRATIVE: CASE EVENT DATE: 20170911
